FAERS Safety Report 20034660 (Version 4)
Quarter: 2022Q1

REPORT INFORMATION
  Report Type: Report from Study
  Country: US (occurrence: US)
  Receive Date: 20211104
  Receipt Date: 20220322
  Transmission Date: 20220424
  Serious: Yes (Hospitalization)
  Sender: FDA-Public Use
  Company Number: US-TAKEDA-2021TUS021233

PATIENT
  Sex: Male
  Weight: 58.05 kg

DRUGS (21)
  1. HUMAN IMMUNOGLOBULIN G [Suspect]
     Active Substance: HUMAN IMMUNOGLOBULIN G
     Indication: Immunodeficiency common variable
     Dosage: 6 GRAM, 1/WEEK
     Route: 058
     Dates: start: 20201028
  2. DIGOXIN [Concomitant]
     Active Substance: DIGOXIN
  3. PERIACTIN [Concomitant]
     Active Substance: CYPROHEPTADINE HYDROCHLORIDE
  4. ACETAMINOPHEN [Concomitant]
     Active Substance: ACETAMINOPHEN
  5. DIPHENHYDRAMINE [Concomitant]
     Active Substance: DIPHENHYDRAMINE
  6. EPINEPHRINE [Concomitant]
     Active Substance: EPINEPHRINE
  7. LIDOCAINE [Concomitant]
     Active Substance: LIDOCAINE
  8. SINGULAIR [Concomitant]
     Active Substance: MONTELUKAST SODIUM
  9. CLONIDINE [Concomitant]
     Active Substance: CLONIDINE
  10. ASPIRIN [Concomitant]
     Active Substance: ASPIRIN
  11. OMEPRAZOLE [Concomitant]
     Active Substance: OMEPRAZOLE
  12. ENALAPRIL MALEATE [Concomitant]
     Active Substance: ENALAPRIL MALEATE
  13. THIAMINE HYDROCHLORIDE [Concomitant]
     Active Substance: THIAMINE HYDROCHLORIDE
  14. VITAMIN C [Concomitant]
     Active Substance: ASCORBIC ACID
  15. TADALAFIL [Concomitant]
     Active Substance: TADALAFIL
  16. LASIX [Concomitant]
     Active Substance: FUROSEMIDE
  17. OPSUMIT [Concomitant]
     Active Substance: MACITENTAN
  18. GUANFACINE [Concomitant]
     Active Substance: GUANFACINE
  19. VITAMIN D2 [Concomitant]
     Active Substance: ERGOCALCIFEROL
  20. UPTRAVI [Concomitant]
     Active Substance: SELEXIPAG
  21. IRON [Concomitant]
     Active Substance: IRON

REACTIONS (9)
  - Catheter site discharge [Unknown]
  - Catheter site erythema [Unknown]
  - Fluid retention [Unknown]
  - Infection [Unknown]
  - Catheter site pain [Unknown]
  - Catheter site swelling [Unknown]
  - Catheter site infection [Unknown]
  - Infusion site reaction [Unknown]
  - Product intolerance [Unknown]
